FAERS Safety Report 25956965 (Version 1)
Quarter: 2025Q4

REPORT INFORMATION
  Report Type: Spontaneous
  Country: TW (occurrence: TW)
  Receive Date: 20251024
  Receipt Date: 20251024
  Transmission Date: 20260117
  Serious: Yes (Other)
  Sender: REGENERON
  Company Number: TW-BAYER-2025A136428

PATIENT

DRUGS (2)
  1. EYLEA HD [Suspect]
     Active Substance: AFLIBERCEPT
     Indication: Product used for unknown indication
     Dosage: UNK, ONCE, 114.3MG/ML, SOLUTION FOR INJECTION
     Route: 031
     Dates: start: 20250624, end: 20250624
  2. EYLEA HD [Suspect]
     Active Substance: AFLIBERCEPT
     Dosage: UNK, ONCE, 114.3MG/ML, SOLUTION FOR INJECTION
     Route: 031
     Dates: start: 20250916, end: 20250916

REACTIONS (3)
  - Eye inflammation [Unknown]
  - Blindness [Unknown]
  - Eye oedema [Unknown]

NARRATIVE: CASE EVENT DATE: 20250101
